FAERS Safety Report 15723100 (Version 1)
Quarter: 2018Q4

REPORT INFORMATION
  Report Type: Report from Study
  Country: US (occurrence: US)
  Receive Date: 20181214
  Receipt Date: 20181214
  Transmission Date: 20190205
  Serious: Yes (Other)
  Sender: FDA-Public Use
  Company Number: US-UCBSA-2018045866

PATIENT
  Age: 87 Year
  Sex: Female
  Weight: 54 kg

DRUGS (1)
  1. CERTOLIZUMAB PEGOL [Suspect]
     Active Substance: CERTOLIZUMAB PEGOL
     Indication: RHEUMATOID ARTHRITIS
     Dosage: UNK
     Dates: start: 20180907, end: 20180924

REACTIONS (4)
  - Injection site discolouration [Recovering/Resolving]
  - Headache [Not Recovered/Not Resolved]
  - Injection site swelling [Recovering/Resolving]
  - Infected cyst [Recovering/Resolving]

NARRATIVE: CASE EVENT DATE: 2018
